FAERS Safety Report 10089377 (Version 1)
Quarter: 2014Q2

REPORT INFORMATION
  Report Type: Spontaneous
  Country: CH (occurrence: CH)
  Receive Date: 20140421
  Receipt Date: 20140421
  Transmission Date: 20141212
  Serious: Yes (Hospitalization)
  Sender: FDA-Public Use
  Company Number: CH-PFIZER INC-2014105984

PATIENT
  Age: 85 Year
  Sex: Male

DRUGS (4)
  1. ZOLOFT [Suspect]
     Indication: DEPRESSION
     Dosage: 50 MG, 1X/DAY
  2. ASPIRIN CARDIO [Interacting]
     Dosage: 100 MG, 1X/DAY
     Route: 048
     Dates: end: 20140221
  3. PLAVIX [Interacting]
     Dosage: 75 MG, 1X/DAY
     Route: 048
     Dates: end: 20140221
  4. REMERON [Concomitant]
     Dosage: UNK

REACTIONS (2)
  - Drug interaction [Recovering/Resolving]
  - Subdural haematoma [Recovering/Resolving]
